FAERS Safety Report 20761120 (Version 3)
Quarter: 2022Q2

REPORT INFORMATION
  Report Type: Report from Study
  Country: GB (occurrence: GB)
  Receive Date: 20220428
  Receipt Date: 20220506
  Transmission Date: 20220720
  Serious: Yes (Death, Life-Threatening, Hospitalization, Other)
  Sender: FDA-Public Use
  Company Number: GB-BRISTOL-MYERS SQUIBB COMPANY-2022-025349

PATIENT
  Age: 56 Year
  Sex: Male
  Weight: 135.9 kg

DRUGS (13)
  1. NIVOLUMAB [Suspect]
     Active Substance: NIVOLUMAB
     Indication: Hepatocellular carcinoma
     Route: 042
     Dates: start: 20220113
  2. DOXORUBICIN [Suspect]
     Active Substance: DOXORUBICIN
     Indication: Hepatocellular carcinoma
     Route: 065
     Dates: start: 20220128, end: 20220128
  3. CETIRIZINE [Concomitant]
     Active Substance: CETIRIZINE HYDROCHLORIDE
     Indication: Pruritus
     Dosage: OD
     Route: 048
     Dates: start: 20220130
  4. CIPROFLOXACIN [Concomitant]
     Active Substance: CIPROFLOXACIN
     Indication: Therapeutic embolisation
     Route: 048
     Dates: start: 20220128, end: 20220302
  5. CYCLIZINE [Concomitant]
     Active Substance: CYCLIZINE
     Indication: Prophylaxis of nausea and vomiting
     Dosage: TDS
     Route: 048
     Dates: start: 20220127, end: 20220130
  6. CYCLIZINE [Concomitant]
     Active Substance: CYCLIZINE
     Indication: Prophylaxis of nausea and vomiting
  7. MIRTAZAPINE [Concomitant]
     Active Substance: MIRTAZAPINE
     Indication: Depression
     Dosage: OID
     Route: 048
     Dates: start: 2000
  8. Quetiaprine [Concomitant]
     Indication: Depression
     Dosage: OID
     Route: 048
     Dates: start: 2000
  9. VENLAFAXINE [Concomitant]
     Active Substance: VENLAFAXINE HYDROCHLORIDE
     Indication: Depression
     Dosage: OID
     Route: 048
     Dates: start: 2000
  10. METFORMIN [Concomitant]
     Active Substance: METFORMIN HYDROCHLORIDE
     Indication: Type 2 diabetes mellitus
     Dosage: BID
     Route: 048
     Dates: start: 2012
  11. RAMIPRIL [Concomitant]
     Active Substance: RAMIPRIL
     Indication: Hypertension
     Dosage: OID
     Route: 048
     Dates: start: 2000
  12. Novarapid [Concomitant]
     Indication: Diabetes mellitus
     Dosage: 26 UNITS?MORNING?24 UNITS EVENING
     Route: 058
     Dates: start: 2012
  13. SITAGLIPTIN [Concomitant]
     Active Substance: SITAGLIPTIN
     Indication: Type 2 diabetes mellitus
     Dosage: OD
     Route: 048
     Dates: start: 2012

REACTIONS (1)
  - Pneumocystis jirovecii pneumonia [Fatal]

NARRATIVE: CASE EVENT DATE: 20220405
